FAERS Safety Report 16438668 (Version 2)
Quarter: 2019Q3

REPORT INFORMATION
  Report Type: Spontaneous
  Country: NL (occurrence: NL)
  Receive Date: 20190617
  Receipt Date: 20190718
  Transmission Date: 20191004
  Serious: Yes (Life-Threatening, Hospitalization, Other)
  Sender: FDA-Public Use
  Company Number: NL-SA-2019SA161889

PATIENT
  Age: 68 Year
  Sex: Male

DRUGS (3)
  1. IMATINIB SALT NOT SPECIFIED [Suspect]
     Active Substance: IMATINIB
     Indication: CHRONIC MYELOID LEUKAEMIA
     Dosage: 400 MG, INITIAL DOSE
  2. BUMETANIDE. [Concomitant]
     Active Substance: BUMETANIDE
     Dosage: FOR A FEW MONTHS
  3. CLOPIDOGREL [Concomitant]
     Active Substance: CLOPIDOGREL BISULFATE

REACTIONS (9)
  - Fatigue [Recovered/Resolved]
  - Dyspnoea exertional [Recovered/Resolved]
  - Weight decreased [Recovered/Resolved]
  - Rales [Recovered/Resolved]
  - Interstitial lung disease [Recovered/Resolved]
  - Organising pneumonia [Recovered/Resolved]
  - Muscular weakness [Recovered/Resolved]
  - Cardiac murmur [Recovered/Resolved]
  - Pulmonary toxicity [Recovered/Resolved]
